FAERS Safety Report 16839238 (Version 1)
Quarter: 2019Q3

REPORT INFORMATION
  Report Type: Spontaneous
  Country: US (occurrence: US)
  Receive Date: 20190731
  Receipt Date: 20190731
  Transmission Date: 20191005
  Serious: No
  Sender: FDA-Public Use
  Company Number: None

PATIENT

DRUGS (2)
  1. OXYCODONE HYDROCHLORIDE. [Suspect]
     Active Substance: OXYCODONE HYDROCHLORIDE
  2. OXYCODONE IR [Suspect]
     Active Substance: OXYCODONE

REACTIONS (3)
  - Incorrect product formulation administered [None]
  - Product dispensing error [None]
  - Product name confusion [None]
